FAERS Safety Report 6199806-0 (Version None)
Quarter: 2009Q2

REPORT INFORMATION
  Report Type: 
  Country: None (occurrence: None)
  Receive Date: 20090522
  Receipt Date: 20090514
  Transmission Date: 20091009
  Serious: Yes (Hospitalization, Other)
  Sender: FDA-Public Use
  Company Number: JP-PFIZER INC-2009199955

PATIENT
  Age: 66 Year

DRUGS (1)
  1. CORTRIL [Suspect]
     Indication: ISOLATED ADRENOCORTICOTROPIC HORMONE DEFICIENCY
     Dosage: 15 MG, 1X/DAY
     Route: 048
     Dates: start: 20080310

REACTIONS (3)
  - ALTERED STATE OF CONSCIOUSNESS [None]
  - ASCITES [None]
  - HALLUCINATION, VISUAL [None]
